FAERS Safety Report 8362414-7 (Version None)
Quarter: 2012Q2

REPORT INFORMATION
  Report Type: 
  Country: None (occurrence: None)
  Receive Date: 20120516
  Receipt Date: 20120508
  Transmission Date: 20120825
  Serious: No
  Sender: FDA-Public Use
  Company Number: US-BIOGENIDEC-2012BI016481

PATIENT
  Age: 54 Year
  Sex: Female

DRUGS (3)
  1. TYSABRI [Suspect]
     Indication: MULTIPLE SCLEROSIS
     Route: 042
     Dates: start: 20120118, end: 20120322
  2. COPAXONE [Concomitant]
     Indication: PRODUCT USED FOR UNKNOWN INDICATION
     Dates: start: 20120430, end: 20120502
  3. AVONEX [Concomitant]
     Indication: MULTIPLE SCLEROSIS
     Route: 030
     Dates: start: 20031102

REACTIONS (11)
  - APHASIA [None]
  - CHEST PAIN [None]
  - BLOOD PRESSURE INCREASED [None]
  - DIZZINESS [None]
  - GAIT DISTURBANCE [None]
  - FATIGUE [None]
  - ADVERSE DRUG REACTION [None]
  - INJECTION SITE REACTION [None]
  - PARAESTHESIA ORAL [None]
  - THROAT TIGHTNESS [None]
  - NAUSEA [None]
